FAERS Safety Report 21897322 (Version 1)
Quarter: 2023Q1

REPORT INFORMATION
  Report Type: Spontaneous
  Country: US (occurrence: None)
  Receive Date: 20230120
  Receipt Date: 20230120
  Transmission Date: 20230417
  Serious: Yes (Hospitalization, Other)
  Sender: FDA-Public Use
  Company Number: None

PATIENT
  Age: 93 Year
  Sex: Male

DRUGS (4)
  1. COVID-19 VACCINE NOS [Suspect]
     Active Substance: COVID-19 VACCINE NOS
     Indication: COVID-19 prophylaxis
     Dates: start: 20221128, end: 20221128
  2. DIGOXIN [Suspect]
     Active Substance: DIGOXIN
  3. METOPROLOL TARTRATE [Suspect]
     Active Substance: METOPROLOL TARTRATE
  4. FUROSEMIDE [Suspect]
     Active Substance: FUROSEMIDE

REACTIONS (3)
  - Fall [None]
  - Debridement [None]
  - Orthostatic hypotension [None]

NARRATIVE: CASE EVENT DATE: 20221129
